FAERS Safety Report 8381875-0 (Version None)
Quarter: 2012Q2

REPORT INFORMATION
  Report Type: 
  Country: None (occurrence: None)
  Receive Date: 20120522
  Receipt Date: 20120522
  Transmission Date: 20120825
  Serious: Yes (Life-Threatening)
  Sender: FDA-Public Use
  Company Number: None

PATIENT
  Sex: Female
  Weight: 76.2043 kg

DRUGS (1)
  1. DAPSONE [Suspect]
     Indication: DERMATITIS
     Dosage: 75 MG 1 X'S PER DAY PO
     Route: 048
     Dates: start: 20120318, end: 20120505

REACTIONS (7)
  - MUSCLE SPASMS [None]
  - TINEA CAPITIS [None]
  - CHILLS [None]
  - DYSPNOEA [None]
  - FEELING COLD [None]
  - VERTIGO [None]
  - COUGH [None]
